FAERS Safety Report 23780633 (Version 2)
Quarter: 2024Q2

REPORT INFORMATION
  Report Type: Spontaneous
  Country: JP (occurrence: JP)
  Receive Date: 20240425
  Receipt Date: 20240516
  Transmission Date: 20240716
  Serious: Yes (Hospitalization, Other)
  Sender: FDA-Public Use
  Company Number: JP-NBI-BJ202407297

PATIENT
  Age: 77 Year
  Sex: Male

DRUGS (3)
  1. SPEVIGO [Suspect]
     Active Substance: SPESOLIMAB-SBZO
     Indication: Pustular psoriasis
     Route: 041
     Dates: start: 20240227, end: 20240227
  2. SPEVIGO [Suspect]
     Active Substance: SPESOLIMAB-SBZO
     Route: 041
     Dates: start: 20240306, end: 20240306
  3. PIPERACILLIN SODIUM [Suspect]
     Active Substance: PIPERACILLIN SODIUM
     Indication: Pneumonia bacterial
     Route: 042
     Dates: start: 20240319

REACTIONS (1)
  - Tubulointerstitial nephritis [Recovering/Resolving]

NARRATIVE: CASE EVENT DATE: 20240327
